FAERS Safety Report 24703176 (Version 3)
Quarter: 2025Q1

REPORT INFORMATION
  Report Type: Spontaneous
  Country: FR (occurrence: FR)
  Receive Date: 20241205
  Receipt Date: 20250219
  Transmission Date: 20250408
  Serious: No
  Sender: PFIZER
  Company Number: FR-PFIZER INC-PV202400156952

PATIENT
  Age: 5 Year
  Sex: Male

DRUGS (1)
  1. NGENLA [Suspect]
     Active Substance: SOMATROGON-GHLA
     Dates: start: 20240807, end: 20240913

REACTIONS (1)
  - Injection site pain [Unknown]
